FAERS Safety Report 5011602-6 (Version None)
Quarter: 2006Q2

REPORT INFORMATION
  Report Type: 
  Country: None (occurrence: None)
  Receive Date: 20060404
  Receipt Date: 20051104
  Transmission Date: 20061013
  Serious: No
  Sender: FDA-Public Use
  Company Number: USA0511112796

PATIENT
  Age: 81 Year
  Sex: Male

DRUGS (3)
  1. CYMBALTA [Suspect]
     Indication: HYPOAESTHESIA
     Dosage: 30 MG, 2/D
  2. ZOCOR [Concomitant]
  3. HYDROCODONE [Concomitant]

REACTIONS (3)
  - ACTIVITIES OF DAILY LIVING IMPAIRED [None]
  - DIZZINESS [None]
  - FEELING ABNORMAL [None]
